FAERS Safety Report 20511630 (Version 1)
Quarter: 2022Q1

REPORT INFORMATION
  Report Type: Spontaneous
  Country: US (occurrence: None)
  Receive Date: 20220223
  Receipt Date: 20220223
  Transmission Date: 20220423
  Serious: Yes (Life-Threatening, Hospitalization, Other)
  Sender: FDA-Public Use
  Company Number: None

PATIENT
  Age: 14 Year
  Sex: Male
  Weight: 62.7 kg

DRUGS (1)
  1. STELARA [Suspect]
     Active Substance: USTEKINUMAB
     Indication: Crohn^s disease
     Dosage: OTHER FREQUENCY : Q4- Q8 WEEKS;?
     Route: 058
     Dates: start: 20201027, end: 20220212

REACTIONS (2)
  - Hodgkin^s disease [None]
  - Hodgkin^s disease nodular sclerosis [None]

NARRATIVE: CASE EVENT DATE: 20220216
